FAERS Safety Report 24727852 (Version 1)
Quarter: 2024Q4

REPORT INFORMATION
  Report Type: Spontaneous
  Country: US (occurrence: None)
  Receive Date: 20241212
  Receipt Date: 20241212
  Transmission Date: 20250115
  Serious: Yes (Life-Threatening)
  Sender: Public
  Company Number: None

PATIENT
  Age: 70 Year
  Sex: Male
  Weight: 108 kg

DRUGS (1)
  1. SULFAMETHOXAZOLE AND TRIMETHOPRIM [Suspect]
     Active Substance: SULFAMETHOXAZOLE\TRIMETHOPRIM
     Indication: Bursitis
     Route: 048

REACTIONS (7)
  - Liver injury [None]
  - Anaemia [None]
  - Confusional state [None]
  - Pyrexia [None]
  - Blood creatinine increased [None]
  - Lethargy [None]
  - Vomiting [None]

NARRATIVE: CASE EVENT DATE: 20240603
